FAERS Safety Report 7128575-2 (Version None)
Quarter: 2010Q4

REPORT INFORMATION
  Report Type: 
  Country: None (occurrence: None)
  Receive Date: 20101130
  Receipt Date: 20101110
  Transmission Date: 20110411
  Serious: Yes (Other)
  Sender: FDA-Public Use
  Company Number: US-SANOFI-AVENTIS-2010SA068912

PATIENT
  Sex: Male

DRUGS (2)
  1. OPTICLICK [Suspect]
  2. INSULIN [Suspect]
     Route: 058

REACTIONS (3)
  - DEVICE MALFUNCTION [None]
  - INCORRECT STORAGE OF DRUG [None]
  - PRODUCT QUALITY ISSUE [None]
